FAERS Safety Report 25951332 (Version 1)
Quarter: 2025Q4

REPORT INFORMATION
  Report Type: Spontaneous
  Country: SO (occurrence: SO)
  Receive Date: 20251023
  Receipt Date: 20251023
  Transmission Date: 20260118
  Serious: Yes (Hospitalization, Other)
  Sender: PHARMOBEDIENT CONSULTING, LLC
  Company Number: SO-Pharmobedient-000340

PATIENT
  Age: 26 Year
  Sex: Male

DRUGS (1)
  1. FLUCONAZOLE [Suspect]
     Active Substance: FLUCONAZOLE
     Indication: Antifungal treatment
     Dosage: FULL DOSE

REACTIONS (4)
  - Drug ineffective [Unknown]
  - Haemodynamic instability [Unknown]
  - Renal failure [Unknown]
  - Aortic valve incompetence [Unknown]
